FAERS Safety Report 8373313-9 (Version None)
Quarter: 2012Q2

REPORT INFORMATION
  Report Type: 
  Country: None (occurrence: None)
  Receive Date: 20120521
  Receipt Date: 20110503
  Transmission Date: 20120825
  Serious: No
  Sender: FDA-Public Use
  Company Number: US-TEVA-2011002198

PATIENT
  Sex: Female
  Weight: 118.04 kg

DRUGS (12)
  1. RITUXIMAB [Suspect]
     Indication: MANTLE CELL LYMPHOMA STAGE IV
     Route: 042
  2. AMLODIPINE BESYLATE [Concomitant]
  3. MAXZIDE [Concomitant]
  4. TREANDA [Suspect]
     Indication: MANTLE CELL LYMPHOMA STAGE IV
     Route: 042
     Dates: start: 20110427, end: 20110427
  5. LORAZEPAM [Concomitant]
  6. LABETALOL HCL [Concomitant]
  7. AVAPRO [Concomitant]
  8. DOXEPIN [Concomitant]
  9. LEXAPRO [Concomitant]
  10. PRAVACHOL [Concomitant]
  11. BENADRYL [Concomitant]
     Dates: start: 20110427, end: 20110427
  12. PANTOPRAZOLE [Concomitant]

REACTIONS (2)
  - RASH MACULAR [None]
  - RASH ERYTHEMATOUS [None]
